FAERS Safety Report 25831582 (Version 1)
Quarter: 2025Q3

REPORT INFORMATION
  Report Type: Report from Study
  Country: KR (occurrence: KR)
  Receive Date: 20250922
  Receipt Date: 20250922
  Transmission Date: 20251021
  Serious: Yes (Life-Threatening, Hospitalization)
  Sender: ELI LILLY AND COMPANY
  Company Number: KR-ELI_LILLY_AND_COMPANY-KR202509007845

PATIENT
  Sex: Male

DRUGS (3)
  1. RETEVMO [Suspect]
     Active Substance: SELPERCATINIB
     Indication: Non-small cell lung cancer metastatic
     Dosage: 320 MG, DAILY (80MG 2CAP BID)
     Route: 048
     Dates: start: 202502, end: 2025
  2. RETEVMO [Suspect]
     Active Substance: SELPERCATINIB
     Dosage: 80 MG, BID
     Route: 048
     Dates: start: 2025, end: 2025
  3. RETEVMO [Suspect]
     Active Substance: SELPERCATINIB
     Dosage: 240 MG, DAILY (80MG 1CAP IN THE MORNING AND 2CAP IN THE EVENING PO)
     Route: 048
     Dates: start: 202505

REACTIONS (10)
  - Platelet count decreased [Recovered/Resolved]
  - General physical health deterioration [Recovered/Resolved]
  - Myalgia [Recovered/Resolved]
  - Confusional state [Recovered/Resolved]
  - Consciousness fluctuating [Recovered/Resolved]
  - Illness [Recovered/Resolved]
  - Discomfort [Unknown]
  - Headache [Recovered/Resolved]
  - Rash [Recovered/Resolved]
  - Vomiting [Unknown]

NARRATIVE: CASE EVENT DATE: 20250101
